FAERS Safety Report 8606167-3 (Version None)
Quarter: 2012Q3

REPORT INFORMATION
  Report Type: 
  Country: None (occurrence: None)
  Receive Date: 20120820
  Receipt Date: 20120810
  Transmission Date: 20120928
  Serious: Yes (Other)
  Sender: FDA-Public Use
  Company Number: GB-ASTRAZENECA-2012SE54970

PATIENT
  Age: 34 Year
  Sex: Female

DRUGS (4)
  1. ATORVASTATIN [Suspect]
     Indication: BLOOD CHOLESTEROL
     Route: 048
  2. FENOFIBRATE [Concomitant]
  3. ROSUVASTATIN [Suspect]
     Indication: BLOOD GLUCOSE INCREASED
     Route: 048
  4. SITAGLIPTIN [Concomitant]

REACTIONS (10)
  - BLOOD GLUCOSE INCREASED [None]
  - PAIN IN EXTREMITY [None]
  - FATIGUE [None]
  - ABDOMINAL PAIN UPPER [None]
  - CHROMATURIA [None]
  - BURNING SENSATION [None]
  - PARAESTHESIA [None]
  - MYALGIA [None]
  - GROIN PAIN [None]
  - THIRST [None]
